FAERS Safety Report 16614519 (Version 4)
Quarter: 2019Q4

REPORT INFORMATION
  Report Type: Spontaneous
  Country: US (occurrence: US)
  Receive Date: 20190723
  Receipt Date: 20191105
  Transmission Date: 20200122
  Serious: No
  Sender: FDA-Public Use
  Company Number: US-PFIZER INC-2019307493

PATIENT
  Age: 70 Year
  Sex: Male
  Weight: 63.5 kg

DRUGS (7)
  1. METFORMIN [Concomitant]
     Active Substance: METFORMIN HYDROCHLORIDE
     Indication: DIABETES MELLITUS
     Dosage: 4 DF, DAILY
  2. VIAGRA [Suspect]
     Active Substance: SILDENAFIL CITRATE
     Indication: PROSTATIC DISORDER
     Dosage: 50 MG, 1X/DAY [NIGHT]
  3. VIAGRA [Suspect]
     Active Substance: SILDENAFIL CITRATE
     Indication: SEXUAL DYSFUNCTION
     Dosage: 100 MG, 1 TABLET AS NEEDED
     Route: 048
  4. VIAGRA [Suspect]
     Active Substance: SILDENAFIL CITRATE
     Indication: ERECTILE DYSFUNCTION
     Dosage: 25%, 33%, 35% TO 65 PERCENT OF THE PILL OF 100MG
  5. VIAGRA [Suspect]
     Active Substance: SILDENAFIL CITRATE
     Dosage: 100 MG, ONE EVERY SIX DAYS
  6. VIAGRA [Suspect]
     Active Substance: SILDENAFIL CITRATE
     Dosage: 1 AND A HALF PILL EVERY 6 DAYS
  7. SIMVASTIN [Concomitant]
     Active Substance: SIMVASTATIN
     Indication: BLOOD CHOLESTEROL
     Dosage: 40 MG, 1X/DAY
     Route: 048

REACTIONS (7)
  - Blood glucose increased [Unknown]
  - Memory impairment [Unknown]
  - Intentional product use issue [Unknown]
  - Therapeutic response unexpected [Unknown]
  - Micturition frequency decreased [Unknown]
  - Blood cholesterol increased [Unknown]
  - Glycosylated haemoglobin increased [Unknown]
